FAERS Safety Report 21628195 (Version 1)
Quarter: 2022Q4

REPORT INFORMATION
  Report Type: Spontaneous
  Country: US (occurrence: US)
  Receive Date: 20221122
  Receipt Date: 20221122
  Transmission Date: 20230113
  Serious: No
  Sender: FDA-Public Use
  Company Number: US-BRISTOL-MYERS SQUIBB COMPANY-2022-141420

PATIENT
  Age: 72 Year
  Sex: Male
  Weight: 92.8 kg

DRUGS (1)
  1. REVLIMID [Suspect]
     Active Substance: LENALIDOMIDE
     Indication: Mantle cell lymphoma
     Dosage: FREQUENCY : DAILY NO BREAKS
     Route: 065
     Dates: start: 20221019

REACTIONS (2)
  - Off label use [Unknown]
  - Adverse event [Unknown]

NARRATIVE: CASE EVENT DATE: 20220101
